FAERS Safety Report 5642014-X (Version None)
Quarter: 2008Q1

REPORT INFORMATION
  Report Type: 
  Country: None (occurrence: None)
  Receive Date: 20080225
  Receipt Date: 20080129
  Transmission Date: 20080703
  Serious: No
  Sender: FDA-Public Use
  Company Number: 001#1#2008-00077

PATIENT
  Age: 72 Year
  Sex: Male

DRUGS (2)
  1. NEURO-PATCH-DOSE-UNKNOWN (ROTIGOTINE) [Suspect]
     Indication: PARKINSON'S DISEASE
     Dosage: 2 MG/24H (2 MG/24H 1 IN 1 DAY(S)) TRANSDERMAL; 4 MG/24H (4 MG/24H 1 IN 1 DAY(S)) TRANSDERMAL; 6 MG/2
     Route: 062
     Dates: end: 20080128
  2. NEURO-PATCH-DOSE-UNKNOWN (ROTIGOTINE) [Suspect]
     Indication: PARKINSON'S DISEASE
     Dosage: 2 MG/24H (2 MG/24H 1 IN 1 DAY(S)) TRANSDERMAL; 4 MG/24H (4 MG/24H 1 IN 1 DAY(S)) TRANSDERMAL; 6 MG/2
     Route: 062
     Dates: start: 20071203

REACTIONS (3)
  - APPLICATION SITE ERYTHEMA [None]
  - APPLICATION SITE PUSTULES [None]
  - APPLICATION SITE REACTION [None]
